FAERS Safety Report 9222459 (Version 1)
Quarter: 2013Q2

REPORT INFORMATION
  Report Type: Spontaneous
  Country: IT (occurrence: IT)
  Receive Date: 20130410
  Receipt Date: 20130410
  Transmission Date: 20140414
  Serious: Yes (Hospitalization)
  Sender: FDA-Public Use
  Company Number: IT-MYLANLABS-2013S1007227

PATIENT
  Age: 76 Year
  Sex: Male

DRUGS (3)
  1. SOTALOL HYDROCHLORIDE [Suspect]
     Indication: HYPERTENSION
     Route: 048
     Dates: start: 20050101, end: 20130321
  2. NORVASC [Concomitant]
     Indication: HYPERTENSION
  3. ALIFLUS [Concomitant]
     Indication: BRONCHITIS CHRONIC
     Route: 055

REACTIONS (3)
  - Atrioventricular block [Recovered/Resolved]
  - Dyspnoea [Recovered/Resolved]
  - Syncope [Recovered/Resolved]
